FAERS Safety Report 5758657-9 (Version None)
Quarter: 2008Q2

REPORT INFORMATION
  Report Type: 
  Country: None (occurrence: None)
  Receive Date: 20080507
  Receipt Date: 20070828
  Transmission Date: 20081010
  Serious: Yes (Hospitalization)
  Sender: FDA-Public Use
  Company Number: 237247K07USA

PATIENT
  Age: 44 Year
  Sex: Female

DRUGS (2)
  1. REBIF [Suspect]
     Indication: MULTIPLE SCLEROSIS
     Dosage: 44 MCG, 3 IN 1 WEEKS, SUBCUTANEOUS
     Route: 058
     Dates: start: 20050729
  2. NAPROSYN [Concomitant]

REACTIONS (8)
  - BURNING SENSATION [None]
  - GAIT DISTURBANCE [None]
  - INJECTION SITE IRRITATION [None]
  - MULTIPLE SCLEROSIS RELAPSE [None]
  - PAIN [None]
  - PAIN IN EXTREMITY [None]
  - PERONEAL NERVE PALSY [None]
  - RED BLOOD CELL COUNT DECREASED [None]
